FAERS Safety Report 9998731 (Version 1)
Quarter: 2014Q1

REPORT INFORMATION
  Report Type: Spontaneous
  Country: US (occurrence: US)
  Receive Date: 20140312
  Receipt Date: 20140312
  Transmission Date: 20141002
  Serious: No
  Sender: FDA-Public Use
  Company Number: US-BIOGENIDEC-2014BI019602

PATIENT
  Age: 58 Year
  Sex: Male

DRUGS (7)
  1. TECFIDERA [Suspect]
     Indication: MULTIPLE SCLEROSIS
     Route: 048
  2. ALPRAZOLAM ER [Concomitant]
  3. ASPIR-LOW [Concomitant]
  4. DULOXETINE HCI [Concomitant]
  5. ENALAPRIL MALEATE [Concomitant]
  6. GABAPENTIN [Concomitant]
  7. OXYCODONE-ACETAMINOPHEN [Concomitant]

REACTIONS (1)
  - Back pain [Unknown]
